FAERS Safety Report 5811033-2 (Version None)
Quarter: 2008Q3

REPORT INFORMATION
  Report Type: 
  Country: None (occurrence: None)
  Receive Date: 20080710
  Receipt Date: 20080623
  Transmission Date: 20090109
  Serious: Yes (Other)
  Sender: FDA-Public Use
  Company Number: 19697

PATIENT
  Age: 52 Year
  Sex: Female

DRUGS (6)
  1. CARBOPLATIN [Suspect]
     Indication: METASTASES TO PERITONEUM
     Dosage: 540 MG Q3W IV
     Route: 042
     Dates: start: 20071227, end: 20080211
  2. TAXOL [Concomitant]
  3. POLARAMINE [Concomitant]
  4. RANIPLEX [Concomitant]
  5. PREDNISOLONE [Concomitant]
  6. ZOPHREN [Concomitant]

REACTIONS (2)
  - HYPERSENSITIVITY [None]
  - INFUSION RELATED REACTION [None]
